FAERS Safety Report 14867491 (Version 2)
Quarter: 2019Q3

REPORT INFORMATION
  Report Type: Report from Study
  Country: US (occurrence: US)
  Receive Date: 20180508
  Receipt Date: 20190918
  Transmission Date: 20191004
  Serious: Yes (Hospitalization)
  Sender: FDA-Public Use
  Company Number: US-ALKERMES INC.-ALK-2018-002180

PATIENT
  Age: 30 Year
  Sex: Male

DRUGS (7)
  1. BLINDED BUPROPION [Suspect]
     Active Substance: BUPROPION
     Indication: DRUG USE DISORDER
     Dosage: UNK UNK, Q3WK
     Route: 048
     Dates: start: 20171218
  2. BLINDED BUPROPION [Suspect]
     Active Substance: BUPROPION
     Dosage: UNK, UNK QD
     Route: 048
     Dates: start: 20171218
  3. BLINDED PLACEBO [Suspect]
     Active Substance: INVESTIGATIONAL PRODUCT
     Indication: DRUG USE DISORDER
     Dosage: UNK UNK, Q3WK
     Route: 048
     Dates: start: 20171218
  4. ALBUTEROL. [Concomitant]
     Active Substance: ALBUTEROL
     Indication: PRODUCT USED FOR UNKNOWN INDICATION
     Dosage: UNK, QMO
  5. VIVITROL [Suspect]
     Active Substance: NALTREXONE
     Indication: DRUG USE DISORDER
     Dosage: UNK UNK, Q3WK
     Route: 048
     Dates: start: 20171218
  6. VIVITROL [Suspect]
     Active Substance: NALTREXONE
     Dosage: UNK, UNK QD
     Route: 048
     Dates: start: 20171218
  7. BLINDED PLACEBO [Suspect]
     Active Substance: INVESTIGATIONAL PRODUCT
     Dosage: UNK, UNK QD
     Route: 048
     Dates: start: 20171218

REACTIONS (2)
  - Cellulitis [Recovered/Resolved]
  - Abscess limb [Recovered/Resolved]

NARRATIVE: CASE EVENT DATE: 20180224
